FAERS Safety Report 6076716-0 (Version None)
Quarter: 2009Q1

REPORT INFORMATION
  Report Type: 
  Country: None (occurrence: None)
  Receive Date: 20090213
  Receipt Date: 20090204
  Transmission Date: 20090719
  Serious: Yes (Hospitalization)
  Sender: FDA-Public Use
  Company Number: JP-NOVOPROD-283892

PATIENT
  Age: 60 Year
  Sex: Male

DRUGS (1)
  1. NOVORAPID 30 MIX CHU FLEXPEN [Suspect]
     Indication: TYPE 2 DIABETES MELLITUS
     Dosage: 40 IU (30 MORNING - 10 EVENING), QD
     Route: 058
     Dates: start: 20080801

REACTIONS (2)
  - HYPERSENSITIVITY [None]
  - VOMITING [None]
